FAERS Safety Report 6119004-6 (Version None)
Quarter: 2009Q1

REPORT INFORMATION
  Report Type: 
  Country: None (occurrence: None)
  Receive Date: 20090316
  Receipt Date: 20090213
  Transmission Date: 20090719
  Serious: No
  Sender: FDA-Public Use
  Company Number: US-BAYER-200913395NA

PATIENT
  Age: 44 Year
  Sex: Female

DRUGS (1)
  1. YASMIN [Suspect]
     Indication: CONTRACEPTION
     Route: 048
     Dates: start: 20081001

REACTIONS (4)
  - HEADACHE [None]
  - MOOD ALTERED [None]
  - ORGASMIC SENSATION DECREASED [None]
  - WEIGHT INCREASED [None]
